FAERS Safety Report 22194123 (Version 1)
Quarter: 2023Q2

REPORT INFORMATION
  Report Type: Spontaneous
  Country: US (occurrence: US)
  Receive Date: 20230411
  Receipt Date: 20230411
  Transmission Date: 20230722
  Serious: No
  Sender: FDA-Public Use
  Company Number: US-SHIONOGUS-20220900217

PATIENT

DRUGS (1)
  1. SYMPROIC [Suspect]
     Active Substance: NALDEMEDINE
     Indication: Product used for unknown indication
     Dosage: 0.2 MILLIGRAM, UNKNOWN
     Route: 065

REACTIONS (2)
  - Product physical issue [Unknown]
  - Product size issue [Unknown]

NARRATIVE: CASE EVENT DATE: 20220907
